FAERS Safety Report 5419523-1 (Version None)
Quarter: 2007Q3

REPORT INFORMATION
  Report Type: 
  Country: None (occurrence: None)
  Receive Date: 20070820
  Receipt Date: 20070813
  Transmission Date: 20080115
  Serious: Yes (Other)
  Sender: FDA-Public Use
  Company Number: BR-AVENTIS-200715985GDDC

PATIENT
  Age: 56 Year
  Sex: Female
  Weight: 43 kg

DRUGS (9)
  1. LANTUS [Suspect]
     Route: 058
     Dates: start: 20060101
  2. LANTUS [Suspect]
     Route: 058
     Dates: start: 20070601, end: 20070101
  3. LANTUS [Suspect]
     Route: 058
     Dates: start: 20070101
  4. OPTIPEN (INSULIN PUMP) [Suspect]
     Route: 058
     Dates: start: 20060101
  5. DIGOXIN [Concomitant]
     Dosage: DOSE QUANTITY: 0.5
     Route: 048
     Dates: start: 20060101
  6. AAS [Concomitant]
     Dosage: DOSE QUANTITY: 2
     Route: 048
     Dates: start: 20050101
  7. DIVELOL [Concomitant]
     Dosage: DOSE QUANTITY: 0.25
     Route: 048
     Dates: start: 20060101
  8. ALDACTONE [Concomitant]
     Dosage: DOSE QUANTITY: 0.5
     Route: 048
     Dates: start: 20060101
  9. ALPRAZOLAM [Concomitant]
     Dosage: DOSE QUANTITY: 0.5
     Route: 048

REACTIONS (5)
  - BLINDNESS [None]
  - CONDITION AGGRAVATED [None]
  - HYPERGLYCAEMIA [None]
  - OFF LABEL USE [None]
  - PHARMACEUTICAL PRODUCT COMPLAINT [None]
